FAERS Safety Report 21574145 (Version 2)
Quarter: 2022Q4

REPORT INFORMATION
  Report Type: Report from Study
  Country: CN (occurrence: CN)
  Receive Date: 20221109
  Receipt Date: 20221128
  Transmission Date: 20230113
  Serious: Yes (Hospitalization)
  Sender: FDA-Public Use
  Company Number: CN-BRISTOL-MYERS SQUIBB COMPANY-2022-106253

PATIENT
  Age: 67 Year
  Sex: Male
  Weight: 61 kg

DRUGS (9)
  1. PRADNISONE ACETATE TABLETS [Concomitant]
     Indication: Adrenal insufficiency
     Dosage: END DATE IS -AUG-2022
     Route: 048
     Dates: start: 20220705
  2. PRADNISONE ACETATE TABLETS [Concomitant]
     Route: 048
     Dates: start: 202209
  3. CALCIUM CARBONATE AND VITAMIN D3 TABLETS [Concomitant]
     Indication: Product used for unknown indication
     Dosage: DRUG END DATE IS -AUG-2022
     Route: 048
     Dates: start: 20220629
  4. METOPROLOL TARTRATE [Concomitant]
     Active Substance: METOPROLOL TARTRATE
     Indication: Product used for unknown indication
     Route: 048
     Dates: start: 20220706
  5. OMEPRAZOLE MAGNESIUM [Concomitant]
     Active Substance: OMEPRAZOLE MAGNESIUM
     Indication: Prophylaxis
     Dosage: DRUG END DATE IS -AUG-2022
     Route: 048
     Dates: start: 20220811
  6. Macrogol pulvis [Concomitant]
     Indication: Constipation
     Dosage: DOSE 1 UNITS NOT SPECIFIED, DRUG END DATE -SEP-2022
     Route: 048
     Dates: start: 202209
  7. OMEPRAZOLE [Concomitant]
     Active Substance: OMEPRAZOLE
     Indication: Product used for unknown indication
     Dosage: ENTERIC COATED CAPSULE
     Route: 048
     Dates: start: 202209
  8. TWENTY FIVE SHANHU CAPSULES (TRADITIONAL CHINESE MEDICINE) [Concomitant]
     Indication: Dizziness
     Dosage: DOSE 1 UNITS NOT SPECIFIED?END DATE: -SEP-2022
     Route: 048
     Dates: start: 202209
  9. TWENTY FIVE SHANHU CAPSULES (TRADITIONAL CHINESE MEDICINE) [Concomitant]
     Dosage: DOSE: 1 UNITS NOS
     Route: 048
     Dates: start: 202209, end: 202210

REACTIONS (1)
  - Malnutrition [Recovered/Resolved with Sequelae]

NARRATIVE: CASE EVENT DATE: 20220907
